FAERS Safety Report 12199658 (Version 1)
Quarter: 2016Q1

REPORT INFORMATION
  Report Type: Other
  Country: JP (occurrence: JP)
  Receive Date: 20160322
  Receipt Date: 20160322
  Transmission Date: 20160526
  Serious: No
  Sender: FDA-Public Use
  Company Number: JP-WARNER CHILCOTT, LLC-1049413

PATIENT
  Age: 53 Year
  Sex: Female

DRUGS (2)
  1. ACTONEL [Suspect]
     Active Substance: RISEDRONATE SODIUM
     Route: 048
  2. PREDNISOLONE. [Concomitant]
     Active Substance: PREDNISOLONE

REACTIONS (2)
  - Atypical femur fracture [Unknown]
  - Impaired healing [Unknown]
